FAERS Safety Report 10096780 (Version 1)
Quarter: 2014Q2

REPORT INFORMATION
  Report Type: Spontaneous
  Country: CM (occurrence: CM)
  Receive Date: 20140422
  Receipt Date: 20140422
  Transmission Date: 20141212
  Serious: Yes (Hospitalization)
  Sender: FDA-Public Use
  Company Number: CM-009507513-1404CMR011811

PATIENT
  Age: 20 Year
  Sex: Male
  Weight: 74 kg

DRUGS (4)
  1. MECTIZAN [Suspect]
     Indication: FILARIASIS LYMPHATIC
     Dosage: 4 DF, UNK
     Route: 048
     Dates: start: 20130709
  2. MECTIZAN [Suspect]
     Indication: ONCHOCERCIASIS
  3. MECTIZAN [Suspect]
     Indication: FILARIASIS
  4. ALBENDAZOLE [Suspect]
     Indication: FILARIASIS LYMPHATIC
     Dosage: 1 DF, UNK
     Route: 048
     Dates: start: 20130709

REACTIONS (5)
  - Vision blurred [Recovered/Resolved]
  - Abasia [Recovered/Resolved]
  - Headache [Recovered/Resolved]
  - Conjunctival haemorrhage [Recovered/Resolved]
  - Asthenia [Recovered/Resolved]
